FAERS Safety Report 9840307 (Version 1)
Quarter: 2013Q4

REPORT INFORMATION
  Report Type: Spontaneous
  Country: US (occurrence: None)
  Receive Date: 20131211
  Receipt Date: 20131211
  Transmission Date: 20140711
  Serious: No
  Sender: FDA-Public Use
  Company Number: ALL1-2013-00036

PATIENT
  Age: 69 Year
  Sex: Female
  Weight: 53.5 kg

DRUGS (14)
  1. FIRAZYR [Suspect]
     Indication: ENZYME ABNORMALITY
     Route: 058
     Dates: start: 20111011
  2. HEPARIN (HEPARIN) [Concomitant]
  3. SODIUM CHLORIDE [Concomitant]
  4. EPINEPHRINE [Concomitant]
  5. BERINERT (COMPLEMENT C1 ESTERASE INHIBITOR) [Concomitant]
  6. METOPROLOL TARTRATE (METOPROLOL TARTRATE) [Concomitant]
  7. ALPRAZOLAM [Concomitant]
  8. TOPROL (METOPROLOL SUCCINATE) [Concomitant]
  9. METHYLPHENIDATE HYDROCHLORIDE [Concomitant]
  10. FLONASE (FLUTICASONE PROPIONATE) [Concomitant]
  11. HYDROCODONE W/APAP /00607101/ (HYDROCODONE BITARTRATE, PARACETAMOL) [Concomitant]
  12. MULTIVITAMIN /07504101/ (VITAMIN NOS) [Concomitant]
  13. TRAZODONE (TRAZODONE) [Concomitant]
  14. VITAMIN D /00107901/ (ERGOCALCIFEROL) [Concomitant]

REACTIONS (1)
  - Nasopharyngitis [None]
